FAERS Safety Report 20859607 (Version 1)
Quarter: 2022Q2

REPORT INFORMATION
  Report Type: Spontaneous
  Country: CA (occurrence: CA)
  Receive Date: 20220523
  Receipt Date: 20220523
  Transmission Date: 20220721
  Serious: Yes (Other)
  Sender: FDA-Public Use
  Company Number: CA-BAUSCH-BL-2022-012432

PATIENT
  Age: 54 Year
  Sex: Male

DRUGS (19)
  1. BUPROPION [Interacting]
     Active Substance: BUPROPION
     Indication: Depression
     Route: 065
  2. BUPROPION [Interacting]
     Active Substance: BUPROPION
     Indication: Depression
     Dosage: INCREASED
     Route: 065
     Dates: start: 2007
  3. RALTEGRAVIR [Interacting]
     Active Substance: RALTEGRAVIR
     Indication: HIV infection
     Route: 065
     Dates: start: 20070620
  4. CLONAZEPAM [Interacting]
     Active Substance: CLONAZEPAM
     Indication: Depression
     Route: 065
  5. CLONAZEPAM [Interacting]
     Active Substance: CLONAZEPAM
     Indication: Depression
  6. CLONAZEPAM [Interacting]
     Active Substance: CLONAZEPAM
     Indication: Psychotic disorder
  7. QUETIAPINE [Interacting]
     Active Substance: QUETIAPINE
     Indication: Depression
     Route: 065
  8. QUETIAPINE [Interacting]
     Active Substance: QUETIAPINE
     Indication: Depression
  9. SERTRALINE [Interacting]
     Active Substance: SERTRALINE HYDROCHLORIDE
     Indication: Depression
     Route: 065
  10. SERTRALINE [Interacting]
     Active Substance: SERTRALINE HYDROCHLORIDE
     Indication: Depression
  11. VALPROIC ACID [Interacting]
     Active Substance: VALPROIC ACID
     Indication: Depression
     Route: 065
  12. VALPROIC ACID [Interacting]
     Active Substance: VALPROIC ACID
     Dosage: INCREASED
     Route: 065
     Dates: start: 2007
  13. ZOPICLONE [Interacting]
     Active Substance: ZOPICLONE
     Indication: Depression
     Route: 065
  14. ZOPICLONE [Interacting]
     Active Substance: ZOPICLONE
     Dosage: INCREASED
     Route: 065
     Dates: start: 2007
  15. ZOPICLONE [Interacting]
     Active Substance: ZOPICLONE
     Route: 065
  16. EFAVIRENZ [Concomitant]
     Active Substance: EFAVIRENZ
     Indication: HIV infection
     Dates: start: 2004
  17. LAMIVUDINE [Concomitant]
     Active Substance: LAMIVUDINE
     Indication: HIV infection
  18. LOPINAVIR\RITONAVIR [Concomitant]
     Active Substance: LOPINAVIR\RITONAVIR
     Indication: HIV infection
  19. ATAZANAVIR [Concomitant]
     Active Substance: ATAZANAVIR
     Indication: HIV infection

REACTIONS (2)
  - Psychiatric decompensation [Recovered/Resolved]
  - Drug interaction [Recovered/Resolved]

NARRATIVE: CASE EVENT DATE: 20070101
